FAERS Safety Report 7808051-1 (Version None)
Quarter: 2011Q4

REPORT INFORMATION
  Report Type: 
  Country: None (occurrence: None)
  Receive Date: 20111011
  Receipt Date: 20111004
  Transmission Date: 20120403
  Serious: Yes (Other)
  Sender: FDA-Public Use
  Company Number: US-BAYER-201018024NA

PATIENT
  Age: 74 Year
  Sex: Male
  Weight: 67.347 kg

DRUGS (40)
  1. EPOGEN [Concomitant]
  2. ALTERNAGEL [Concomitant]
  3. CIPROFLOXACIN [Concomitant]
     Dosage: 500 MG, QD
     Dates: start: 20041215, end: 20051004
  4. ARANESP [Concomitant]
  5. MAGNEVIST [Suspect]
     Indication: IMAGING PROCEDURE
     Dates: start: 20010402, end: 20010402
  6. MAGNEVIST [Suspect]
     Indication: NUCLEAR MAGNETIC RESONANCE IMAGING
     Dates: start: 20020711, end: 20020711
  7. OMNISCAN [Suspect]
     Indication: NUCLEAR MAGNETIC RESONANCE IMAGING
     Dosage: UNK
     Dates: start: 20041212, end: 20041212
  8. OMNISCAN [Suspect]
     Dosage: 15 ML (DAILY DOSE), ,
     Dates: start: 20050913, end: 20050913
  9. ASPIRIN [Concomitant]
  10. VASOTEC [Concomitant]
  11. VENOFER [Concomitant]
  12. SENSIPAR [Concomitant]
  13. AMIODARONE HCL [Concomitant]
  14. ISOSORBIDE DINITRATE [Concomitant]
  15. CELEXA [Concomitant]
     Dosage: 40 MG, QD
  16. HYDROCODONE BITARTRATE [Concomitant]
  17. TENORMIN [Concomitant]
  18. AMBIEN [Concomitant]
  19. NEXIUM [Concomitant]
  20. PREDNISONE [Concomitant]
     Dosage: 7 MG, UNK
  21. RENAGEL [Concomitant]
     Dosage: 800 MG, 3-4 WITH MEALS AND 1-2 WITH SNACKS
  22. TOPROL-XL [Concomitant]
  23. GLYBURIDE [Concomitant]
  24. DURAGESIC-100 [Concomitant]
     Indication: PAIN
     Dosage: 50 MG/HR PATCH, Q72HR
     Route: 062
  25. MAGNEVIST [Suspect]
     Indication: ANGIOGRAM
  26. OMNISCAN [Suspect]
     Dosage: UNK
     Dates: start: 20041213, end: 20041213
  27. OMNISCAN [Suspect]
     Route: 042
     Dates: start: 20050517, end: 20050517
  28. TRICOR [Concomitant]
     Dosage: 54 MG, QD
  29. DIATX [Concomitant]
  30. OMNISCAN [Suspect]
     Dosage: 15 ML (DAILY DOSE), ,
     Dates: start: 20050119, end: 20050119
  31. SENSIPAR [Concomitant]
     Dosage: 30 MG, UNK
  32. CARDURA [Concomitant]
  33. ZEMPLAR [Concomitant]
     Dates: start: 20050726
  34. ALPRAZOLAM [Concomitant]
  35. IRON [Concomitant]
  36. NORVASC [Concomitant]
     Dosage: 5 MG, QD
  37. PHOSLO [Concomitant]
  38. FOLIC ACID [Concomitant]
     Dosage: 5 MG, UNK
  39. COUMADIN [Concomitant]
  40. ASPIRIN [Concomitant]

REACTIONS (27)
  - NEPHROGENIC SYSTEMIC FIBROSIS [None]
  - JOINT STIFFNESS [None]
  - SKIN EXFOLIATION [None]
  - PAIN [None]
  - BURNING SENSATION [None]
  - SKIN HYPERTROPHY [None]
  - EXFOLIATIVE RASH [None]
  - PRURITUS [None]
  - SKIN TIGHTNESS [None]
  - DRY SKIN [None]
  - SCAR [None]
  - SKIN INDURATION [None]
  - JOINT CONTRACTURE [None]
  - ERYTHEMA [None]
  - RASH [None]
  - HYPOAESTHESIA [None]
  - EXTREMITY CONTRACTURE [None]
  - DEFORMITY [None]
  - PAIN IN EXTREMITY [None]
  - JOINT RANGE OF MOTION DECREASED [None]
  - SKIN PLAQUE [None]
  - SKIN FISSURES [None]
  - MUSCULAR WEAKNESS [None]
  - JOINT SWELLING [None]
  - GENERAL PHYSICAL HEALTH DETERIORATION [None]
  - OEDEMA PERIPHERAL [None]
  - ABASIA [None]
